FAERS Safety Report 11557127 (Version 3)
Quarter: 2015Q4

REPORT INFORMATION
  Report Type: Report from Study
  Country: BR (occurrence: BR)
  Receive Date: 20150925
  Receipt Date: 20151223
  Transmission Date: 20160304
  Serious: Yes (Other)
  Sender: FDA-Public Use
  Company Number: BR-ABBVIE-15P-020-1470667-00

PATIENT
  Age: 22 Year
  Sex: Female
  Weight: 45 kg

DRUGS (8)
  1. KALETRA [Suspect]
     Active Substance: LOPINAVIR\RITONAVIR
     Dosage: 200/50 MG BID
     Route: 048
     Dates: start: 20151020
  2. TENOFOVIR/LAMIVUDINE [Concomitant]
     Dosage: 300/300MG 1 CAP QD
     Route: 048
     Dates: start: 20151020
  3. RIFAMPICIN [Concomitant]
     Active Substance: RIFAMPIN
     Route: 048
     Dates: start: 20151001
  4. RIFAMPICIN [Concomitant]
     Active Substance: RIFAMPIN
     Indication: PULMONARY TUBERCULOSIS
     Route: 048
     Dates: end: 20150908
  5. TENOFOVIR/LAMIVUDINE [Concomitant]
     Indication: HIV INFECTION
     Dosage: 300/300MG 1 CAP QD
     Route: 048
     Dates: end: 20150908
  6. ISONIAZID 75 MG/ETHAMBUTOL 275MG/PYRAZINAMIDE 75MG [Concomitant]
     Route: 048
     Dates: start: 20151001
  7. KALETRA [Suspect]
     Active Substance: LOPINAVIR\RITONAVIR
     Indication: HIV INFECTION
     Dosage: 200/50 MG BID
     Route: 048
     Dates: start: 20150818, end: 20150908
  8. ISONIAZID 75 MG/ETHAMBUTOL 275MG/PYRAZINAMIDE 75MG [Concomitant]
     Indication: PULMONARY TUBERCULOSIS
     Route: 048
     Dates: end: 20150908

REACTIONS (1)
  - Thrombocytopenia [Recovered/Resolved]

NARRATIVE: CASE EVENT DATE: 20150908
